FAERS Safety Report 19708505 (Version 1)
Quarter: 2021Q3

REPORT INFORMATION
  Report Type: Report from Study
  Country: FR (occurrence: FR)
  Receive Date: 20210817
  Receipt Date: 20210817
  Transmission Date: 20211014
  Serious: Yes (Hospitalization)
  Sender: FDA-Public Use
  Company Number: FR-GLAXOSMITHKLINE-FR2021EME172047

PATIENT
  Sex: Male

DRUGS (1)
  1. FLUTICASONE FUR+UMECLIDINIUM+VILANTEROL [Suspect]
     Active Substance: FLUTICASONE FUROATE\UMECLIDINIUM BROMIDE\VILANTEROL TRIFENATATE
     Indication: CHRONIC OBSTRUCTIVE PULMONARY DISEASE
     Dosage: UNK,92/55/22/UG

REACTIONS (10)
  - Asthenia [Unknown]
  - Condition aggravated [Unknown]
  - Chest discomfort [Unknown]
  - Mobility decreased [Unknown]
  - Cough [Unknown]
  - Productive cough [Unknown]
  - Dyspnoea [Unknown]
  - Sleep disorder due to a general medical condition [Unknown]
  - Lung disorder [Unknown]
  - Drug ineffective [Unknown]
